FAERS Safety Report 16846044 (Version 1)
Quarter: 2019Q3

REPORT INFORMATION
  Report Type: Spontaneous
  Country: SI (occurrence: SI)
  Receive Date: 20190924
  Receipt Date: 20190924
  Transmission Date: 20191005
  Serious: Yes (Death, Other)
  Sender: FDA-Public Use
  Company Number: SI-BAYER-2019-172660

PATIENT
  Age: 59 Year
  Sex: Male

DRUGS (1)
  1. STIVARGA [Suspect]
     Active Substance: REGORAFENIB
     Indication: COLORECTAL CANCER
     Dosage: UNK
     Dates: start: 201906, end: 201908

REACTIONS (4)
  - Diarrhoea [None]
  - Colorectal cancer [None]
  - Death [Fatal]
  - Blood pressure increased [None]

NARRATIVE: CASE EVENT DATE: 2019
